FAERS Safety Report 7349435-8 (Version None)
Quarter: 2011Q1

REPORT INFORMATION
  Report Type: 
  Country: None (occurrence: None)
  Receive Date: 20110314
  Receipt Date: 20101207
  Transmission Date: 20110831
  Serious: No
  Sender: FDA-Public Use
  Company Number: US-ABBOTT-10P-163-0690174-00

PATIENT
  Sex: Female
  Weight: 59.02 kg

DRUGS (4)
  1. DEPAKOTE [Suspect]
     Indication: CONVULSION
     Dosage: 1 TAB 50  MG AM AND 250 AT NIGHT
     Dates: start: 20100601, end: 20100801
  2. DEPAKOTE [Suspect]
     Dates: start: 20101101
  3. DECLINED LIST VITAMINS [Concomitant]
     Indication: PRODUCT USED FOR UNKNOWN INDICATION
  4. DEPAKOTE [Suspect]
     Dates: start: 20100801, end: 20101101

REACTIONS (2)
  - DRUG LEVEL DECREASED [None]
  - FLASHBACK [None]
